FAERS Safety Report 12525289 (Version 1)
Quarter: 2016Q3

REPORT INFORMATION
  Report Type: Spontaneous
  Country: DE (occurrence: DE)
  Receive Date: 20160704
  Receipt Date: 20160704
  Transmission Date: 20161109
  Serious: Yes (Other)
  Sender: FDA-Public Use
  Company Number: DE-JNJFOC-20160622060

PATIENT
  Age: 27 Year
  Sex: Female
  Weight: 65 kg

DRUGS (1)
  1. VERMOX [Suspect]
     Active Substance: MEBENDAZOLE
     Indication: ENTEROBIASIS
     Route: 048
     Dates: start: 20160106, end: 20160109

REACTIONS (3)
  - Haemorrhage in pregnancy [Recovered/Resolved]
  - Exposure during pregnancy [Recovered/Resolved]
  - Preterm premature rupture of membranes [Recovered/Resolved]
